FAERS Safety Report 13946492 (Version 1)
Quarter: 2017Q3

REPORT INFORMATION
  Report Type: Report from Study
  Country: VE (occurrence: VE)
  Receive Date: 20170907
  Receipt Date: 20170907
  Transmission Date: 20171128
  Serious: Yes (Hospitalization, Other)
  Sender: FDA-Public Use
  Company Number: PHHY2017VE128993

PATIENT
  Sex: Female

DRUGS (1)
  1. TASIGNA [Suspect]
     Active Substance: NILOTINIB
     Indication: CHRONIC MYELOID LEUKAEMIA
     Dosage: 200 MG, QD
     Route: 048
     Dates: start: 20140115

REACTIONS (7)
  - Blast crisis in myelogenous leukaemia [Unknown]
  - Back disorder [Unknown]
  - Herpes zoster [Unknown]
  - Asthenia [Unknown]
  - Chronic myeloid leukaemia recurrent [Unknown]
  - White blood cell count decreased [Unknown]
  - Haemoglobin decreased [Unknown]
